FAERS Safety Report 19731261 (Version 1)
Quarter: 2021Q3

REPORT INFORMATION
  Report Type: Spontaneous
  Country: DE (occurrence: DE)
  Receive Date: 20210821
  Receipt Date: 20210821
  Transmission Date: 20211014
  Serious: Yes (Other)
  Sender: FDA-Public Use
  Company Number: NVSC2021DE186719

PATIENT
  Age: 3 Month
  Sex: Female

DRUGS (3)
  1. TRAMETINIB [Suspect]
     Active Substance: TRAMETINIB
     Indication: CARDIAC HYPERTROPHY
  2. TRAMETINIB [Suspect]
     Active Substance: TRAMETINIB
     Indication: CARDIAC FAILURE
     Dosage: 0.035 MG/KG, QD (INITIALLY)
     Route: 065
  3. TRAMETINIB [Suspect]
     Active Substance: TRAMETINIB
     Indication: RESUSCITATION
     Dosage: 0.025 MG/KG, QD (STEADY STATE)
     Route: 065

REACTIONS (6)
  - Product use in unapproved indication [Unknown]
  - N-terminal prohormone brain natriuretic peptide decreased [Unknown]
  - Eczema [Unknown]
  - Stomatitis [Unknown]
  - Cardiac valve thickening [Unknown]
  - Rash [Unknown]
